FAERS Safety Report 7455664-5 (Version None)
Quarter: 2011Q2

REPORT INFORMATION
  Report Type: 
  Country: None (occurrence: None)
  Receive Date: 20110503
  Receipt Date: 20110429
  Transmission Date: 20111010
  Serious: Yes (Death, Other)
  Sender: FDA-Public Use
  Company Number: BE-GENZYME-CAMP-1001087

PATIENT
  Sex: Male
  Weight: 64.5 kg

DRUGS (2)
  1. CAMPATH [Suspect]
     Indication: PERIPHERAL T-CELL LYMPHOMA UNSPECIFIED
     Dosage: 30 MG, UNK
     Route: 058
     Dates: start: 20100823, end: 20100903
  2. OMEPRAZOLE [Concomitant]
     Indication: PRODUCT USED FOR UNKNOWN INDICATION
     Dosage: 20 MG, UNK
     Route: 065
     Dates: start: 20030801

REACTIONS (2)
  - DECREASED APPETITE [None]
  - DISEASE PROGRESSION [None]
